FAERS Safety Report 11825553 (Version 4)
Quarter: 2019Q3

REPORT INFORMATION
  Report Type: Spontaneous
  Country: US (occurrence: US)
  Receive Date: 20151211
  Receipt Date: 20190702
  Transmission Date: 20191004
  Serious: No
  Sender: FDA-Public Use
  Company Number: US-JNJFOC-20150708865

PATIENT
  Age: 85 Year
  Sex: Male

DRUGS (9)
  1. LORAZEPAM. [Concomitant]
     Active Substance: LORAZEPAM
  2. IMBRUVICA [Suspect]
     Active Substance: IBRUTINIB
     Indication: MANTLE CELL LYMPHOMA
     Route: 048
     Dates: start: 20131119
  3. METAMUCIL [Concomitant]
     Active Substance: PLANTAGO SEED
     Dosage: UNK, Q AM
  4. TAMSULOSIN HYDROCHLORIDE. [Concomitant]
     Active Substance: TAMSULOSIN HYDROCHLORIDE
  5. VELCADE [Concomitant]
     Active Substance: BORTEZOMIB
  6. MIRTAZAPINE. [Concomitant]
     Active Substance: MIRTAZAPINE
  7. GABAPENTIN. [Concomitant]
     Active Substance: GABAPENTIN
  8. OMEPRAZOLE. [Concomitant]
     Active Substance: OMEPRAZOLE
     Indication: HYPERTENSION
  9. METOPROLOL. [Concomitant]
     Active Substance: METOPROLOL

REACTIONS (8)
  - Onychoclasis [Not Recovered/Not Resolved]
  - Muscle spasms [Not Recovered/Not Resolved]
  - Nail growth abnormal [Not Recovered/Not Resolved]
  - Rhinorrhoea [Not Recovered/Not Resolved]
  - Sneezing [Not Recovered/Not Resolved]
  - Rash [Not Recovered/Not Resolved]
  - Nail bed tenderness [Not Recovered/Not Resolved]
  - Seasonal allergy [Not Recovered/Not Resolved]

NARRATIVE: CASE EVENT DATE: 20150810
